FAERS Safety Report 8193851-1 (Version None)
Quarter: 2012Q1

REPORT INFORMATION
  Report Type: 
  Country: None (occurrence: None)
  Receive Date: 20120308
  Receipt Date: 20120303
  Transmission Date: 20120608
  Serious: Yes (Hospitalization, Other)
  Sender: FDA-Public Use
  Company Number: US-BAYER-200941005NA

PATIENT
  Age: 44 Year
  Sex: Female
  Weight: 68.027 kg

DRUGS (6)
  1. YASMIN [Suspect]
     Indication: CONTRACEPTION
     Dosage: UNK
     Dates: start: 20021110, end: 20060708
  2. YAZ [Suspect]
     Indication: ORAL CONTRACEPTION
     Dosage: UNK
     Dates: start: 20071112, end: 20090703
  3. NASONEX [Concomitant]
     Dosage: UNK UNK, CONT
  4. SINGULAIR [Concomitant]
     Dosage: 10 MG, CONT
     Route: 048
  5. RESPIRATORY SYSTEM [Concomitant]
     Dosage: 5 MG, CONT
     Route: 048
  6. TRICOR [Concomitant]
     Dosage: 145 MG, CONT
     Route: 048

REACTIONS (4)
  - CHOLELITHIASIS [None]
  - CHOLECYSTECTOMY [None]
  - PAIN [None]
  - CHOLECYSTITIS CHRONIC [None]
